FAERS Safety Report 4424385-5 (Version None)
Quarter: 2004Q3

REPORT INFORMATION
  Report Type: 
  Country: None (occurrence: None)
  Receive Date: 20040715
  Receipt Date: 20040412
  Transmission Date: 20050211
  Serious: Yes (Hospitalization, Other)
  Sender: FDA-Public Use
  Company Number: 2004205196US

PATIENT
  Age: 59 Year
  Sex: Female
  Weight: 86.2 kg

DRUGS (4)
  1. CELEBREX [Suspect]
     Indication: OSTEOARTHRITIS
     Dosage: 100 MG, BID,
     Dates: start: 19960101, end: 20040301
  2. ASPIRIN [Concomitant]
  3. LIPITOR [Concomitant]
  4. QUININE (QUININE) [Concomitant]

REACTIONS (1)
  - GASTRIC ULCER HAEMORRHAGE [None]
